FAERS Safety Report 5740523-6 (Version None)
Quarter: 2008Q2

REPORT INFORMATION
  Report Type: 
  Country: None (occurrence: None)
  Receive Date: 20080516
  Receipt Date: 20080506
  Transmission Date: 20081010
  Serious: Yes (Other)
  Sender: FDA-Public Use
  Company Number: US-JNJFOC-20080301309

PATIENT
  Sex: Female
  Weight: 136.08 kg

DRUGS (4)
  1. TOPAMAX [Suspect]
     Indication: MOOD ALTERED
     Route: 048
  2. TOPAMAX [Suspect]
     Indication: WEIGHT DECREASED
     Route: 048
  3. PROZAC [Concomitant]
  4. EPA [Concomitant]

REACTIONS (4)
  - ANXIETY [None]
  - FATIGUE [None]
  - NERVOUSNESS [None]
  - PHARYNGEAL OEDEMA [None]
